FAERS Safety Report 7271859-8 (Version None)
Quarter: 2011Q1

REPORT INFORMATION
  Report Type: 
  Country: None (occurrence: None)
  Receive Date: 20110127
  Receipt Date: 20110117
  Transmission Date: 20110831
  Serious: Yes (Hospitalization)
  Sender: FDA-Public Use
  Company Number: 808381

PATIENT
  Age: 99 Year
  Sex: Male

DRUGS (6)
  1. DEXAMETHASONE [Suspect]
     Indication: PRODUCT USED FOR UNKNOWN INDICATION
  2. DOXORUBICIN HYDROCHLORIDE [Suspect]
     Indication: PRODUCT USED FOR UNKNOWN INDICATION
     Dosage: CYCLICAL
  3. VINORELBINE TARTRATE [Suspect]
     Indication: PRODUCT USED FOR UNKNOWN INDICATION
  4. DBL BLEOMYCIN 15000IU (15 UNITS USP) (AS SULFATE) POWDER FOR INJECTION [Suspect]
     Indication: PRODUCT USED FOR UNKNOWN INDICATION
     Dosage: CYCLICIAL
  5. GEMZAR [Suspect]
     Indication: HODGKIN'S DISEASE
     Dates: start: 20080615
  6. VINBLASTINE SULFATE [Suspect]
     Indication: PRODUCT USED FOR UNKNOWN INDICATION
     Dosage: CYCLICAL

REACTIONS (1)
  - PNEUMOCYSTIS JIROVECI PNEUMONIA [None]
